FAERS Safety Report 7740566-7 (Version None)
Quarter: 2011Q3

REPORT INFORMATION
  Report Type: 
  Country: None (occurrence: None)
  Receive Date: 20110909
  Receipt Date: 20110830
  Transmission Date: 20111222
  Serious: Yes (Other)
  Sender: FDA-Public Use
  Company Number: GB-BAYER-2011-079848

PATIENT
  Age: 36 Year
  Sex: Female

DRUGS (2)
  1. ANAESTHETICS [Concomitant]
     Dosage: UNK
     Dates: start: 20110602, end: 20110602
  2. MIRENA [Suspect]
     Indication: UTERINE LEIOMYOMA
     Dosage: UNK
     Dates: start: 20110602, end: 20110817

REACTIONS (4)
  - MOOD SWINGS [None]
  - VAGINAL HAEMORRHAGE [None]
  - SUICIDAL IDEATION [None]
  - WEIGHT INCREASED [None]
